FAERS Safety Report 13353967 (Version 1)
Quarter: 2017Q1

REPORT INFORMATION
  Report Type: Spontaneous
  Country: US (occurrence: US)
  Receive Date: 20170320
  Receipt Date: 20170320
  Transmission Date: 20170429
  Serious: Yes (Hospitalization)
  Sender: FDA-Public Use
  Company Number: None

PATIENT

DRUGS (2)
  1. ISOVUE [Suspect]
     Active Substance: IOPAMIDOL
     Dates: start: 20170315, end: 20170315
  2. ISOVUE 300 [Suspect]
     Active Substance: IOPAMIDOL
     Dates: start: 20170316, end: 20170316

REACTIONS (1)
  - Contrast media allergy [None]

NARRATIVE: CASE EVENT DATE: 20170316
